FAERS Safety Report 10237129 (Version 1)
Quarter: 2014Q1

REPORT INFORMATION
  Report Type: Spontaneous
  Country: US (occurrence: None)
  Receive Date: 20140306
  Receipt Date: 20140306
  Transmission Date: 20141002
  Serious: Yes (Other)
  Sender: FDA-Public Use
  Company Number: 163-21880-12123420

PATIENT
  Age: 73 Year
  Sex: Male

DRUGS (12)
  1. REVLIMID (LENALIDOMIDE) (25 MILLIGRAM, CAPSULES) [Suspect]
     Indication: PLASMA CELL MYELOMA
     Dosage: 25 MG, 21 IN 28 D, PO
     Route: 048
     Dates: start: 20121003
  2. ZOLPIDEM (ZOLPIDEM) (TABLETS) [Concomitant]
  3. MORPHINE SULFATE (MORPHINE SULFATE) (TABLETS) [Concomitant]
  4. HYDROCHLOROTHIAZIDE (HYDROCHLOROTHIAZIDE) (TABLETS) [Concomitant]
  5. DILTIAZEM (DILTIAZEM) (CAPSULES) [Concomitant]
  6. WARFARIN (WARFARIN) (TABLETS) [Concomitant]
  7. TRAMADOL HCL (TRAMADOL HYDROCHLORIDE) (TABLETS) [Concomitant]
  8. TIZANIDINE (TIZANIDINE) (CAPSULES) [Concomitant]
  9. CITALOPRAM (CITALOPRAM) (TABLETS) [Concomitant]
  10. LISINOPRIL (LISINOPRIL) (TABLETS) [Concomitant]
  11. SIMVASTATIN (SIMVASTATIN) (TABLETS) [Concomitant]
  12. HYDROCO/APAP (VICODIN) (TABLETS) [Concomitant]

REACTIONS (5)
  - Quality of life decreased [None]
  - Mental disorder [None]
  - Diarrhoea [None]
  - Nausea [None]
  - Fatigue [None]
